FAERS Safety Report 8208346-6 (Version None)
Quarter: 2012Q1

REPORT INFORMATION
  Report Type: 
  Country: None (occurrence: None)
  Receive Date: 20120314
  Receipt Date: 20120310
  Transmission Date: 20120608
  Serious: Yes (Death)
  Sender: FDA-Public Use
  Company Number: PHHY2012GT021407

PATIENT
  Sex: Male

DRUGS (4)
  1. EXELON [Suspect]
     Dosage: PATCH 10 (9.5 MG PER 24 HOURS)
     Route: 062
  2. LAMISIL [Suspect]
  3. DIOVAN HCT [Suspect]
     Dosage: 1 DF (160 MG VALSAR AND 12.5 MG HYDRO), UNK
  4. PANTOPRAZOLE [Suspect]

REACTIONS (1)
  - DEATH [None]
